FAERS Safety Report 7846817-2 (Version None)
Quarter: 2011Q4

REPORT INFORMATION
  Report Type: 
  Country: None (occurrence: None)
  Receive Date: 20111025
  Receipt Date: 20111021
  Transmission Date: 20120403
  Serious: Yes (Other)
  Sender: FDA-Public Use
  Company Number: PHHO2011GB17727

PATIENT
  Sex: Male
  Weight: 85.2 kg

DRUGS (2)
  1. ZOLEDRONIC [Suspect]
     Dosage: 4 MG, UNK
     Route: 042
     Dates: start: 20100210, end: 20110914
  2. ZOLADEX [Concomitant]
     Indication: METASTASES TO BONE
     Dosage: 10.8 MG, UNK
     Route: 042
     Dates: start: 20100201

REACTIONS (1)
  - OSTEONECROSIS OF JAW [None]
